FAERS Safety Report 5214408-8 (Version None)
Quarter: 2007Q1

REPORT INFORMATION
  Report Type: 
  Country: None (occurrence: None)
  Receive Date: 20070116
  Receipt Date: 20070102
  Transmission Date: 20070707
  Serious: Yes (Hospitalization, Other)
  Sender: FDA-Public Use
  Company Number: 2006BI015293

PATIENT
  Sex: Female

DRUGS (9)
  1. AVONEX [Suspect]
     Indication: MULTIPLE SCLEROSIS
     Dosage: 30 UG; QW; IM
     Route: 030
     Dates: start: 19960101
  2. AVONEX [Suspect]
     Indication: MULTIPLE SCLEROSIS
     Dosage: 30 UG; QW; IM
     Route: 030
  3. VITAMIN B6 [Concomitant]
  4. VITAMIN B-12 [Concomitant]
  5. VITAMIN E [Concomitant]
  6. ASCORBIC ACID [Concomitant]
  7. CALTRATE [Concomitant]
  8. ZINC [Concomitant]
  9. FOLIC ACID [Concomitant]

REACTIONS (1)
  - BREAST CANCER [None]
